FAERS Safety Report 17013497 (Version 2)
Quarter: 2020Q2

REPORT INFORMATION
  Report Type: Spontaneous
  Country: IT (occurrence: IT)
  Receive Date: 20191110
  Receipt Date: 20200619
  Transmission Date: 20200713
  Serious: Yes (Hospitalization, Other)
  Sender: FDA-Public Use
  Company Number: NVSC2019IT026650

PATIENT
  Age: 43 Year
  Sex: Male

DRUGS (6)
  1. THIOCOLCHICOSIDE [Suspect]
     Active Substance: THIOCOLCHICOSIDE
     Indication: BACK PAIN
     Dosage: 4 MG, QD VIAL
     Route: 030
  2. DICLOFENAC SODIUM. [Suspect]
     Active Substance: DICLOFENAC SODIUM
     Indication: BACK PAIN
  3. THIOCOLCHICOSIDE [Suspect]
     Active Substance: THIOCOLCHICOSIDE
     Indication: BACK PAIN
  4. BETAMETHASONE. [Suspect]
     Active Substance: BETAMETHASONE
     Indication: BACK PAIN
     Dosage: 4 MG, QD
     Route: 065
  5. DICLOFENAC SODIUM. [Suspect]
     Active Substance: DICLOFENAC SODIUM
     Indication: BACK PAIN
     Dosage: 75 MG, QD (VIAL)
     Route: 030
  6. BETAMETHASONE. [Suspect]
     Active Substance: BETAMETHASONE
     Dosage: UNK(SOLUTION FOR INJECTION)
     Route: 030

REACTIONS (13)
  - Wrong technique in product usage process [Unknown]
  - Loss of personal independence in daily activities [Recovered/Resolved]
  - Photophobia [Unknown]
  - Type IV hypersensitivity reaction [Recovered/Resolved]
  - Headache [Recovered/Resolved]
  - Steroid withdrawal syndrome [Recovered/Resolved]
  - Product use in unapproved indication [Unknown]
  - Vomiting [Recovered/Resolved]
  - Tachycardia [Recovered/Resolved]
  - Phonophobia [Unknown]
  - Migraine [Recovered/Resolved]
  - Drug ineffective [Unknown]
  - Drug withdrawal headache [Recovered/Resolved]
